FAERS Safety Report 8235280-8 (Version None)
Quarter: 2012Q1

REPORT INFORMATION
  Report Type: 
  Country: None (occurrence: None)
  Receive Date: 20120326
  Receipt Date: 20120323
  Transmission Date: 20120608
  Serious: Yes (Other)
  Sender: FDA-Public Use
  Company Number: VE-ABBOTT-11P-178-0869385-00

PATIENT
  Sex: Female
  Weight: 60 kg

DRUGS (2)
  1. HUMIRA [Suspect]
     Indication: RHEUMATOID ARTHRITIS
     Route: 058
     Dates: start: 20070115, end: 20110930
  2. HUMIRA [Suspect]
     Dates: start: 20120226

REACTIONS (2)
  - TUBERCULIN TEST POSITIVE [None]
  - WEIGHT INCREASED [None]
